FAERS Safety Report 7344615-X (Version None)
Quarter: 2011Q1

REPORT INFORMATION
  Report Type: 
  Country: None (occurrence: None)
  Receive Date: 20110310
  Receipt Date: 20110302
  Transmission Date: 20110831
  Serious: Yes (Death)
  Sender: FDA-Public Use
  Company Number: CH-US-EMD SERONO, INC.-7019187

PATIENT
  Sex: Female
  Weight: 59 kg

DRUGS (9)
  1. GONAL-F [Suspect]
     Indication: IN VITRO FERTILISATION
  2. 5 STIMULATIONS FOR IVF - PRODUCT UNKNOWN [Suspect]
     Indication: IN VITRO FERTILISATION
     Route: 058
  3. CRINONE [Concomitant]
     Route: 067
     Dates: start: 20091101
  4. PERGOVERIS [Suspect]
     Indication: OVULATION INDUCTION
     Dosage: 3 AMPULES PER DAY
     Dates: start: 20090101
  5. PERGOVERIS [Suspect]
     Dosage: 3 AMPULES PER DAY
     Dates: end: 20100101
  6. CRINONE [Concomitant]
     Route: 067
     Dates: start: 20100301
  7. OVITRELLE [Suspect]
     Indication: PRODUCT USED FOR UNKNOWN INDICATION
     Dosage: 3 AMPULES PER DAY (TOTAL)
  8. PERGOVERIS [Suspect]
     Dosage: 3 AMPULES PER DAY
  9. CRINONE [Concomitant]
     Route: 067
     Dates: start: 20100601

REACTIONS (2)
  - METASTASIS [None]
  - MELANOMA RECURRENT [None]
